FAERS Safety Report 17256071 (Version 1)
Quarter: 2020Q1

REPORT INFORMATION
  Report Type: Spontaneous
  Country: US (occurrence: US)
  Receive Date: 20200110
  Receipt Date: 20200110
  Transmission Date: 20200409
  Serious: No
  Sender: FDA-Public Use
  Company Number: US-ASTRAZENECA-2020SE03308

PATIENT
  Age: 23424 Day
  Sex: Female

DRUGS (1)
  1. ZOMIG [Suspect]
     Active Substance: ZOLMITRIPTAN
     Indication: MIGRAINE
     Dosage: USE 1 SPRAY IN 1 NOSTRIL ONCE AT ONSET OF MIGRAINE. MAY REPEAT ONCE AFTER 2 HOURS IF NEEDED.DO NO...
     Route: 045

REACTIONS (2)
  - Product dose omission [Unknown]
  - Weight decreased [Unknown]

NARRATIVE: CASE EVENT DATE: 20191107
